FAERS Safety Report 5310445-3 (Version None)
Quarter: 2007Q2

REPORT INFORMATION
  Report Type: 
  Country: None (occurrence: None)
  Receive Date: 20070427
  Receipt Date: 20070423
  Transmission Date: 20071010
  Serious: Yes (Hospitalization, Other)
  Sender: FDA-Public Use
  Company Number: US-PFIZER INC-2007032266

PATIENT
  Age: 38 Year
  Sex: Male

DRUGS (4)
  1. XANAX [Suspect]
  2. LEXAPRO [Suspect]
     Indication: DEPRESSION
     Dosage: DAILY DOSE:20MG
     Dates: start: 20070220
  3. LEXAPRO [Suspect]
     Indication: PANIC ATTACK
  4. ALCOHOL [Suspect]

REACTIONS (3)
  - LOSS OF CONSCIOUSNESS [None]
  - OVERDOSE [None]
  - SUICIDE ATTEMPT [None]
